FAERS Safety Report 12644225 (Version 5)
Quarter: 2017Q4

REPORT INFORMATION
  Report Type: Report from Study
  Country: US (occurrence: US)
  Receive Date: 20160811
  Receipt Date: 20171219
  Transmission Date: 20180320
  Serious: Yes (Other)
  Sender: FDA-Public Use
  Company Number: PHEH2016US019927

PATIENT
  Sex: Female

DRUGS (1)
  1. GILENYA [Suspect]
     Active Substance: FINGOLIMOD HYDROCHLORIDE
     Indication: MULTIPLE SCLEROSIS
     Dosage: 0.5 MG, QD
     Route: 048
     Dates: start: 20151224, end: 20160810

REACTIONS (9)
  - Peroneal nerve palsy [Unknown]
  - Palpitations [Unknown]
  - Cardiac flutter [Unknown]
  - Vomiting [Not Recovered/Not Resolved]
  - Depression [Unknown]
  - Dizziness [Unknown]
  - Headache [Unknown]
  - Eye disorder [Unknown]
  - Fatigue [Unknown]
